FAERS Safety Report 5610776-3 (Version None)
Quarter: 2008Q1

REPORT INFORMATION
  Report Type: 
  Country: None (occurrence: None)
  Receive Date: 20080201
  Receipt Date: 20071105
  Transmission Date: 20080703
  Serious: Yes (Death, Hospitalization)
  Sender: FDA-Public Use
  Company Number: FI-BRISTOL-MYERS SQUIBB COMPANY-14060099

PATIENT
  Age: 77 Year
  Sex: Female

DRUGS (13)
  1. WARFARIN SODIUM [Suspect]
     Indication: ATRIAL FIBRILLATION
     Route: 048
     Dates: end: 20071005
  2. PLAVIX [Suspect]
     Dosage: 12WEEKS 1DAY-TIME TO ONSET-11WEEKS 6 DAYS
     Route: 048
     Dates: start: 20070713, end: 20071005
  3. PRIMASPAN [Suspect]
     Dosage: 12WEEKS 1DAY-TIME TO ONSET-11WEEKS 6 DAYS
     Route: 048
     Dates: start: 20070713, end: 20071005
  4. PROTAPHANE [Concomitant]
     Route: 058
     Dates: start: 20070716, end: 20071005
  5. HUMALOG [Concomitant]
     Route: 058
     Dates: end: 20071005
  6. GLYCERYL TRINITRATE [Concomitant]
     Route: 048
     Dates: end: 20071005
  7. ORMOX [Concomitant]
     Route: 048
     Dates: end: 20071005
  8. FURESIS [Concomitant]
     Route: 048
     Dates: end: 20071005
  9. METOPROLOL SUCCINATE [Concomitant]
     Route: 048
     Dates: end: 20071005
  10. ATACAND [Concomitant]
     Route: 048
     Dates: end: 20071005
  11. LEVOTHYROXINE SODIUM [Concomitant]
     Route: 048
     Dates: end: 20071005
  12. ZOPICLONE [Concomitant]
     Route: 048
     Dates: end: 20071005
  13. PRAVASTATIN SODIUM [Concomitant]
     Route: 048
     Dates: end: 20071005

REACTIONS (5)
  - BRAIN OEDEMA [None]
  - CEREBRAL HAEMORRHAGE TRAUMATIC [None]
  - FALL [None]
  - SUBARACHNOID HAEMORRHAGE [None]
  - SUBDURAL HAEMATOMA [None]
